FAERS Safety Report 6519103-0 (Version None)
Quarter: 2009Q4

REPORT INFORMATION
  Report Type: 
  Country: None (occurrence: None)
  Receive Date: 20091228
  Receipt Date: 20091216
  Transmission Date: 20100525
  Serious: Yes (Hospitalization, Other)
  Sender: FDA-Public Use
  Company Number: US-BAYER-200943280GPV

PATIENT
  Age: 61 Year
  Sex: Male

DRUGS (7)
  1. CIPROFLOXACIN [Suspect]
     Indication: DRUG USE FOR UNKNOWN INDICATION
     Route: 065
  2. VENLAFAXINE [Interacting]
     Indication: MAJOR DEPRESSION
     Dosage: TOTAL DAILY DOSE: 150 MG
  3. VENLAFAXINE [Interacting]
     Dosage: TOTAL DAILY DOSE: 200 MG
  4. METHADONE HYDROCHLORIDE [Interacting]
     Indication: BACK PAIN
  5. HYDROMORPHONE [Concomitant]
     Indication: BACK PAIN
  6. OXYCODONE [Concomitant]
     Indication: BACK PAIN
  7. METOCLOPRAMIDE [Concomitant]
     Indication: DRUG USE FOR UNKNOWN INDICATION

REACTIONS (11)
  - ANXIETY [None]
  - ATAXIA [None]
  - DIARRHOEA [None]
  - FALL [None]
  - HYPERHIDROSIS [None]
  - HYPERREFLEXIA [None]
  - MYOCLONUS [None]
  - SEROTONIN SYNDROME [None]
  - TACHYCARDIA [None]
  - TACHYPNOEA [None]
  - TREMOR [None]
